FAERS Safety Report 5979266-2 (Version None)
Quarter: 2008Q4

REPORT INFORMATION
  Report Type: 
  Country: None (occurrence: None)
  Receive Date: 20081204
  Receipt Date: 20080903
  Transmission Date: 20090506
  Serious: No
  Sender: FDA-Public Use
  Company Number: US-ABBOTT-08P-163-0474164-00

PATIENT
  Sex: Female
  Weight: 95.34 kg

DRUGS (4)
  1. TRICOR [Suspect]
     Indication: BLOOD CHOLESTEROL INCREASED
     Dosage: DAILY
     Route: 048
     Dates: start: 20080821, end: 20080825
  2. TRICOR [Suspect]
     Dosage: 145 MILLIGRAMS CUT IN HALF
     Route: 048
     Dates: start: 20080825, end: 20080902
  3. MAXZIDE [Concomitant]
     Indication: HYPERTENSION
     Route: 048
  4. METOPROLOL SUCCINATE [Concomitant]
     Indication: HYPERTENSION
     Route: 048

REACTIONS (2)
  - INCORRECT DOSE ADMINISTERED [None]
  - MIGRAINE [None]
